FAERS Safety Report 17750318 (Version 5)
Quarter: 2023Q2

REPORT INFORMATION
  Report Type: Spontaneous
  Country: AT (occurrence: AT)
  Receive Date: 20200506
  Receipt Date: 20230406
  Transmission Date: 20230722
  Serious: Yes (Other)
  Sender: FDA-Public Use
  Company Number: AT-009507513-2005AUT000193

PATIENT
  Age: 72 Year
  Sex: Female

DRUGS (3)
  1. PEMBROLIZUMAB [Suspect]
     Active Substance: PEMBROLIZUMAB
     Indication: Non-small cell lung cancer metastatic
     Dosage: UNK
     Dates: start: 201902
  2. PEMETREXED DISODIUM [Suspect]
     Active Substance: PEMETREXED DISODIUM
     Indication: Lung adenocarcinoma
     Dosage: UNK
     Dates: start: 201902
  3. CARBOPLATIN [Suspect]
     Active Substance: CARBOPLATIN
     Indication: Lung adenocarcinoma
     Dosage: UNK
     Dates: start: 201902

REACTIONS (25)
  - Myocarditis [Unknown]
  - Renal tubular necrosis [Unknown]
  - Renal arteriosclerosis [Unknown]
  - Nephritis [Unknown]
  - Pericardial effusion [Unknown]
  - Tricuspid valve incompetence [Unknown]
  - Right ventricular hypertrophy [Unknown]
  - Gamma-glutamyltransferase increased [Unknown]
  - Blood lactate dehydrogenase increased [Unknown]
  - Fatigue [Unknown]
  - Tachycardia [Unknown]
  - Arteriosclerosis [Unknown]
  - Chest discomfort [Unknown]
  - Hepatic enzyme increased [Unknown]
  - Blood urea increased [Unknown]
  - Blood uric acid increased [Unknown]
  - Blood albumin decreased [Unknown]
  - Troponin T increased [Unknown]
  - Dyspnoea [Unknown]
  - Chest discomfort [Unknown]
  - Blood creatinine increased [Unknown]
  - Blood sodium increased [Unknown]
  - Blood potassium increased [Unknown]
  - Blood calcium decreased [Unknown]
  - Blood magnesium decreased [Unknown]

NARRATIVE: CASE EVENT DATE: 20190601
